FAERS Safety Report 10910278 (Version 1)
Quarter: 2015Q1

REPORT INFORMATION
  Report Type: Spontaneous
  Country: US (occurrence: US)
  Receive Date: 20150312
  Receipt Date: 20150312
  Transmission Date: 20150721
  Serious: No
  Sender: FDA-Public Use
  Company Number: US-SA-2014SA119494

PATIENT
  Sex: Female

DRUGS (3)
  1. NASACORT ALLERGY 24HR [Suspect]
     Active Substance: TRIAMCINOLONE ACETONIDE
     Indication: SINUS DISORDER
     Route: 065
     Dates: start: 20140807, end: 20140828
  2. NASACORT ALLERGY 24HR [Interacting]
     Active Substance: TRIAMCINOLONE ACETONIDE
     Indication: LABYRINTHITIS
     Route: 065
     Dates: start: 20140807, end: 20140828
  3. RESTASIS [Interacting]
     Active Substance: CYCLOSPORINE
     Route: 065

REACTIONS (7)
  - Dysgeusia [Unknown]
  - Headache [Unknown]
  - Dry throat [Unknown]
  - Euphoric mood [Unknown]
  - Drug interaction [Unknown]
  - Eyelid oedema [Unknown]
  - Eyelid pain [Unknown]
